FAERS Safety Report 5934977-X (Version None)
Quarter: 2008Q4

REPORT INFORMATION
  Report Type: 
  Country: None (occurrence: None)
  Receive Date: 20081030
  Receipt Date: 20081023
  Transmission Date: 20090506
  Serious: Yes (Other)
  Sender: FDA-Public Use
  Company Number: US-RANBAXY-2008US-18803

PATIENT

DRUGS (4)
  1. ISOTRETINOIN [Suspect]
     Indication: DRUG USE FOR UNKNOWN INDICATION
     Dosage: 40 MG, ONCE ON 28-SEP-08 AND ONCE ON 4-OCT-08
     Route: 048
     Dates: start: 20080928, end: 20081004
  2. ISOTRETINOIN [Suspect]
     Dosage: 40 MG, QD
     Dates: start: 20071210, end: 20080301
  3. ISOTRETINOIN [Suspect]
     Dosage: 20 MG, QD
     Route: 048
     Dates: start: 20080508, end: 20080608
  4. AMNESTEEM [Suspect]
     Indication: DRUG USE FOR UNKNOWN INDICATION
     Dosage: 40 MG, QD
     Route: 048
     Dates: start: 20060331, end: 20061001

REACTIONS (1)
  - PREGNANCY [None]
